FAERS Safety Report 7336398-4 (Version None)
Quarter: 2011Q1

REPORT INFORMATION
  Report Type: 
  Country: None (occurrence: None)
  Receive Date: 20110307
  Receipt Date: 20110209
  Transmission Date: 20110831
  Serious: No
  Sender: FDA-Public Use
  Company Number: US-B.I. PHARMACEUTICALS,INC./RIDGEFIELD-2010-BP-14319BP

PATIENT
  Sex: Male

DRUGS (12)
  1. LIPITOR [Concomitant]
     Indication: BLOOD CHOLESTEROL INCREASED
     Dosage: 10 MG
     Route: 048
  2. GLIMEPIRIDE [Concomitant]
     Indication: DIABETES MELLITUS
     Route: 048
  3. FUROSEMIDE [Concomitant]
     Route: 048
  4. KLOR-CON [Concomitant]
     Route: 048
  5. PRILOSEC [Concomitant]
     Indication: GASTROOESOPHAGEAL REFLUX DISEASE
  6. LASIX [Concomitant]
  7. PRADAXA [Suspect]
     Indication: ATRIAL FIBRILLATION
     Dosage: 150 MG
     Route: 048
     Dates: start: 20101206
  8. PROCRIT [Concomitant]
     Indication: ANAEMIA
  9. PRADAXA [Suspect]
     Indication: DRUG THERAPY CHANGED
  10. IRON [Concomitant]
     Indication: ANAEMIA
     Route: 048
  11. ADVAIR DISKUS 100/50 [Concomitant]
     Route: 055
  12. DIOVAN [Concomitant]
     Indication: HYPERTENSION
     Route: 048

REACTIONS (10)
  - MALAISE [None]
  - INCREASED UPPER AIRWAY SECRETION [None]
  - FAECES HARD [None]
  - GASTROOESOPHAGEAL REFLUX DISEASE [None]
  - FREQUENT BOWEL MOVEMENTS [None]
  - DYSPHAGIA [None]
  - RECTAL HAEMORRHAGE [None]
  - DIZZINESS [None]
  - DYSPNOEA [None]
  - HAEMOPTYSIS [None]
